APPROVED DRUG PRODUCT: ZIBA-RX
Active Ingredient: BACITRACIN ZINC
Strength: 500,000 UNITS/BOT
Dosage Form/Route: POWDER;FOR RX COMPOUNDING
Application: A061737 | Product #001
Applicant: X GEN PHARMACEUTICALS INC
Approved: Approved Prior to Jan 1, 1982 | RLD: No | RS: No | Type: DISCN